FAERS Safety Report 5023295-2 (Version None)
Quarter: 2006Q2

REPORT INFORMATION
  Report Type: 
  Country: None (occurrence: None)
  Receive Date: 20060612
  Receipt Date: 20060601
  Transmission Date: 20061013
  Serious: Yes (Death)
  Sender: FDA-Public Use
  Company Number: US-JNJFOC-20031000602

PATIENT
  Sex: Female
  Weight: 53.07 kg

DRUGS (25)
  1. REMICADE [Suspect]
     Route: 042
  2. REMICADE [Suspect]
     Indication: RHEUMATOID ARTHRITIS
     Route: 042
  3. ARAVA [Concomitant]
  4. PREDNISONE [Concomitant]
  5. PRILOSEC [Concomitant]
  6. CELEBREX [Concomitant]
  7. FOSAMAX [Concomitant]
  8. EVISTA [Concomitant]
  9. ADVAIR DISKUS 100/50 [Concomitant]
  10. ADVAIR DISKUS 100/50 [Concomitant]
  11. COMBIVENT [Concomitant]
     Route: 055
  12. COMBIVENT [Concomitant]
     Route: 055
  13. PLENDIL [Concomitant]
  14. FOLIC ACID [Concomitant]
  15. CALCIUM GLUCONATE [Concomitant]
  16. ASPIRIN [Concomitant]
  17. SYNTHROID [Concomitant]
  18. MULTIVITAMIN [Concomitant]
  19. MULTIVITAMIN [Concomitant]
  20. MULTIVITAMIN [Concomitant]
  21. MULTIVITAMIN [Concomitant]
  22. MULTIVITAMIN [Concomitant]
  23. MULTIVITAMIN [Concomitant]
  24. MULTIVITAMIN [Concomitant]
  25. MULTIVITAMIN [Concomitant]

REACTIONS (2)
  - MEMORY IMPAIRMENT [None]
  - POLYARTHRITIS [None]
